FAERS Safety Report 6385564-3 (Version None)
Quarter: 2009Q4

REPORT INFORMATION
  Report Type: 
  Country: None (occurrence: None)
  Receive Date: 20091002
  Receipt Date: 20080909
  Transmission Date: 20100525
  Serious: No
  Sender: FDA-Public Use
  Company Number: US-ASTRAZENECA-2008UW18645

PATIENT
  Age: 62 Year
  Sex: Female
  Weight: 49 kg

DRUGS (5)
  1. ARIMIDEX [Suspect]
     Indication: BREAST CANCER
     Route: 054
     Dates: start: 20070301
  2. NASONEX [Concomitant]
  3. FOSAMAX [Concomitant]
  4. EFFEXOR [Concomitant]
  5. MIRTAZAPINE [Concomitant]

REACTIONS (6)
  - ATROPHY [None]
  - BLOOD CHOLESTEROL INCREASED [None]
  - BLOOD OESTROGEN DECREASED [None]
  - BLOOD PRESSURE INCREASED [None]
  - INCONTINENCE [None]
  - OSTEOPENIA [None]
